FAERS Safety Report 10905869 (Version 2)
Quarter: 2015Q1

REPORT INFORMATION
  Report Type: Spontaneous
  Country: CA (occurrence: None)
  Receive Date: 20150226
  Receipt Date: 20150319
  Transmission Date: 20150721
  Serious: Yes (Congenital Anomaly)
  Sender: FDA-Public Use
  Company Number: LIT-022-15-CA

PATIENT
  Sex: Male

DRUGS (3)
  1. HYDROXYCHLOROQUINE SULPHATE [Concomitant]
     Active Substance: HYDROXYCHLOROQUINE
  2. PREDNISONE??? [Concomitant]
  3. HUMAN NORMAL IMMUNOGLOBULIN (IV) (TRADENAME UNKNOWN) [Suspect]
     Active Substance: HUMAN IMMUNOGLOBULIN G
     Indication: FOETAL EXPOSURE TIMING UNSPECIFIED
     Dosage: TRANSPLACENTAL ?
     Route: 064

REACTIONS (4)
  - Caesarean section [None]
  - Maternal drugs affecting foetus [None]
  - Premature baby [None]
  - Hypospadias [None]
